FAERS Safety Report 16127855 (Version 6)
Quarter: 2019Q4

REPORT INFORMATION
  Report Type: Spontaneous
  Country: JP (occurrence: JP)
  Receive Date: 20190328
  Receipt Date: 20191016
  Transmission Date: 20200122
  Serious: Yes (Hospitalization, Other)
  Sender: FDA-Public Use
  Company Number: JP-009507513-1903JPN001860J

PATIENT
  Age: 61 Year
  Sex: Female
  Weight: 46 kg

DRUGS (14)
  1. PITAVASTATIN CA TOWA [Concomitant]
     Dosage: UNK MILLIGRAM
     Route: 048
  2. CARBOPLATIN. [Suspect]
     Active Substance: CARBOPLATIN
     Indication: NON-SMALL CELL LUNG CANCER
     Dosage: 325 MILLIGRAM, Q3W
     Route: 041
     Dates: start: 20190305, end: 20190305
  3. JUVELA N [Concomitant]
     Active Substance: TOCOPHERYL NICOTINATE, D-.ALPHA.
     Dosage: 200 MILLIGRAM, UNK
     Route: 048
  4. MYONAL [Concomitant]
     Dosage: 50 MILLIGRAM,UNK
     Route: 048
  5. PEMETREXED DISODIUM [Suspect]
     Active Substance: PEMETREXED DISODIUM
     Dosage: 710 MILLIGRAM, Q3W
     Route: 041
     Dates: start: 20190416, end: 20190416
  6. TSUMURA SHAKUYAKUKANZOTO EXTRACT GRANULES FOR ETHICAL USE [Concomitant]
     Dosage: 2.5 GRAM, UNK
     Route: 065
  7. CARBOPLATIN. [Suspect]
     Active Substance: CARBOPLATIN
     Dosage: 315 MILLIGRAM, Q3W
     Route: 041
     Dates: start: 20190416
  8. CANDESARTAN. [Concomitant]
     Active Substance: CANDESARTAN
     Dosage: 8 MILLIGRAM, UNK
     Route: 048
  9. FAMOTIDINE D [Concomitant]
     Active Substance: FAMOTIDINE
     Dosage: 20 MILLIGRAM, UNK
     Route: 048
  10. SENNOSIDE [Concomitant]
     Active Substance: SENNOSIDES
     Dosage: 12 MILLIGRAM,UNK
     Route: 048
  11. URSODEOXYCHOLIC ACID [Concomitant]
     Active Substance: URSODIOL
     Dosage: 100 MILLIGRAM, UNK
     Route: 048
  12. PANVITAN [Concomitant]
     Active Substance: VITAMINS
     Dosage: UNK
     Route: 065
  13. KEYTRUDA [Suspect]
     Active Substance: PEMBROLIZUMAB
     Indication: NON-SMALL CELL LUNG CANCER
     Dosage: 200 MILLIGRAM, Q3W
     Route: 041
     Dates: start: 20190305, end: 20190305
  14. PEMETREXED DISODIUM [Suspect]
     Active Substance: PEMETREXED DISODIUM
     Indication: NON-SMALL CELL LUNG CANCER
     Dosage: 710 MILLIGRAM, Q3W
     Route: 041
     Dates: start: 20190305, end: 20190305

REACTIONS (3)
  - Meningitis aseptic [Recovering/Resolving]
  - Immune-mediated hepatitis [Recovering/Resolving]
  - Rash maculo-papular [Recovered/Resolved]

NARRATIVE: CASE EVENT DATE: 20190308
